FAERS Safety Report 23855626 (Version 1)
Quarter: 2024Q2

REPORT INFORMATION
  Report Type: Spontaneous
  Country: US (occurrence: US)
  Receive Date: 20240514
  Receipt Date: 20240514
  Transmission Date: 20240716
  Serious: No
  Sender: FDA-Public Use
  Company Number: US-009507513-2405USA001693

PATIENT
  Age: 46 Year
  Sex: Male

DRUGS (3)
  1. TEMODAR [Suspect]
     Active Substance: TEMOZOLOMIDE
     Indication: Blood corticotrophin abnormal
     Dosage: 150 MG/M2 FOR 5 DAYS OF A 28-DAY CYCLE
     Route: 048
  2. TEMODAR [Suspect]
     Active Substance: TEMOZOLOMIDE
     Indication: Neuroendocrine tumour
  3. TEMODAR [Suspect]
     Active Substance: TEMOZOLOMIDE
     Indication: Gastrin secretion disorder

REACTIONS (1)
  - Off label use [Unknown]
